FAERS Safety Report 7587354-2 (Version None)
Quarter: 2011Q3

REPORT INFORMATION
  Report Type: 
  Country: None (occurrence: None)
  Receive Date: 20110701
  Receipt Date: 20110622
  Transmission Date: 20111222
  Serious: Yes (Hospitalization, Other)
  Sender: FDA-Public Use
  Company Number: US-AMGEN-USACT2011031809

PATIENT
  Age: 53 Year

DRUGS (6)
  1. CYCLOPHOSPHAMIDE [Concomitant]
     Dosage: 600 MG/M2, Q2WK
     Route: 042
     Dates: start: 20080318
  2. FILGRASTIM [Suspect]
     Indication: PRODUCT USED FOR UNKNOWN INDICATION
     Dosage: 5 A?G/KG, UNK
     Route: 058
     Dates: start: 20080318
  3. DOXORUBICIN HCL [Concomitant]
     Dosage: 60 MG/KG, Q2WK
     Route: 042
     Dates: start: 20080318
  4. BEVACIZUMAB [Concomitant]
     Dosage: UNK UNK, Q2WK
     Route: 042
     Dates: start: 20080318
  5. PACLITAXEL [Concomitant]
     Dosage: 80 MG/M2, UNK
     Route: 042
     Dates: start: 20080318
  6. PEGFILGRASTIM [Suspect]
     Indication: PRODUCT USED FOR UNKNOWN INDICATION
     Dosage: 6 MG, UNK
     Route: 058
     Dates: start: 20080318

REACTIONS (7)
  - STOMATITIS [None]
  - HYPOPHOSPHATAEMIA [None]
  - MUCOSAL INFLAMMATION [None]
  - DIARRHOEA [None]
  - NEUTROPHIL COUNT DECREASED [None]
  - NAUSEA [None]
  - VOMITING [None]
